FAERS Safety Report 6877034-0 (Version None)
Quarter: 2010Q3

REPORT INFORMATION
  Report Type: 
  Country: None (occurrence: None)
  Receive Date: 20100727
  Receipt Date: 20100716
  Transmission Date: 20110219
  Serious: Yes (Other)
  Sender: FDA-Public Use
  Company Number: JP-ROCHE-716972

PATIENT
  Sex: Female
  Weight: 38.5 kg

DRUGS (13)
  1. TOCILIZUMAB [Suspect]
     Indication: RHEUMATOID ARTHRITIS
     Route: 041
     Dates: start: 20100108, end: 20100108
  2. TOCILIZUMAB [Suspect]
     Route: 041
     Dates: start: 20100205, end: 20100205
  3. TOCILIZUMAB [Suspect]
     Route: 041
     Dates: start: 20100305, end: 20100305
  4. TOCILIZUMAB [Suspect]
     Route: 041
     Dates: start: 20100402, end: 20100402
  5. TOCILIZUMAB [Suspect]
     Route: 041
     Dates: start: 20100430, end: 20100430
  6. TOCILIZUMAB [Suspect]
     Route: 041
     Dates: start: 20100528, end: 20100528
  7. TOCILIZUMAB [Suspect]
     Route: 041
     Dates: start: 20100702
  8. METHOTREXATE [Concomitant]
     Dosage: DOSE FORM: PERORAL AGENT
     Route: 048
  9. FOLIAMIN [Concomitant]
     Route: 048
  10. EVISTA [Concomitant]
     Dosage: EVISTA TAB 60MG(RALOXIFENE HYDROCHLORIDE)
     Route: 048
  11. ONEALFA [Concomitant]
     Route: 048
  12. OMEPRAL [Concomitant]
     Route: 048
  13. CELECOXIB [Concomitant]
     Route: 048
     Dates: start: 20091216, end: 20100401

REACTIONS (1)
  - PANCYTOPENIA [None]
